FAERS Safety Report 10595824 (Version 2)
Quarter: 2014Q4

REPORT INFORMATION
  Report Type: Report from Study
  Country: US (occurrence: US)
  Receive Date: 20141120
  Receipt Date: 20141223
  Transmission Date: 20150529
  Serious: Yes (Hospitalization, Disabling)
  Sender: FDA-Public Use
  Company Number: US-ACTELION-A-US2014-108405

PATIENT
  Age: 77 Year
  Sex: Male

DRUGS (8)
  1. LEVOFLOXACIN. [Concomitant]
     Active Substance: LEVOFLOXACIN
  2. ASA [Concomitant]
     Active Substance: ASPIRIN
  3. DILTIAZEM [Concomitant]
     Active Substance: DILTIAZEM
  4. MACITENTAN [Suspect]
     Active Substance: MACITENTAN
     Indication: PULMONARY HYPERTENSION
     Dosage: 10 MG, QD
     Route: 048
     Dates: start: 2013
  5. EPOETIN [Concomitant]
     Active Substance: ERYTHROPOIETIN
  6. DUONEB [Concomitant]
     Active Substance: ALBUTEROL SULFATE\IPRATROPIUM BROMIDE
  7. ALBUTEROL. [Concomitant]
     Active Substance: ALBUTEROL
  8. COUMADIN [Concomitant]
     Active Substance: WARFARIN SODIUM

REACTIONS (3)
  - Toe amputation [Unknown]
  - Gangrene [Unknown]
  - Cellulitis [Recovering/Resolving]
